FAERS Safety Report 7377884-0 (Version None)
Quarter: 2011Q1

REPORT INFORMATION
  Report Type: 
  Country: None (occurrence: None)
  Receive Date: 20110328
  Receipt Date: 20110314
  Transmission Date: 20110831
  Serious: Yes (Hospitalization)
  Sender: FDA-Public Use
  Company Number: US-ACTELION-A-US2011-46311

PATIENT

DRUGS (1)
  1. TRACLEER [Suspect]
     Indication: PULMONARY ARTERIAL HYPERTENSION
     Dosage: UNK
     Route: 048
     Dates: start: 20100618

REACTIONS (4)
  - TRICUSPID VALVE REPAIR [None]
  - ATRIAL FIBRILLATION [None]
  - WEIGHT DECREASED [None]
  - ASPIRATION PLEURAL CAVITY [None]
